FAERS Safety Report 23815251 (Version 1)
Quarter: 2024Q2

REPORT INFORMATION
  Report Type: Report from Study
  Country: CA (occurrence: CA)
  Receive Date: 20240503
  Receipt Date: 20240503
  Transmission Date: 20240716
  Serious: Yes (Hospitalization, Other)
  Sender: FDA-Public Use
  Company Number: CA-JNJFOC-20240112389

PATIENT
  Age: 22 Year
  Sex: Female
  Weight: 91.254 kg

DRUGS (3)
  1. REMICADE [Suspect]
     Active Substance: INFLIXIMAB
     Indication: Crohn^s disease
     Route: 041
  2. REMICADE [Suspect]
     Active Substance: INFLIXIMAB
     Route: 041
     Dates: start: 20160219
  3. SKYRIZI [Concomitant]
     Active Substance: RISANKIZUMAB-RZAA
     Indication: Crohn^s disease
     Route: 058
     Dates: start: 20230301

REACTIONS (15)
  - Anal abscess [Recovering/Resolving]
  - Peritonitis [Unknown]
  - Vulval abscess [Recovering/Resolving]
  - Hospitalisation [Unknown]
  - Crohn^s disease [Not Recovered/Not Resolved]
  - Proctectomy [Unknown]
  - Colectomy total [Unknown]
  - Pyloric stenosis [Recovering/Resolving]
  - Enteral nutrition [Recovering/Resolving]
  - Cellulitis [Recovered/Resolved]
  - Episcleritis [Recovering/Resolving]
  - Hidradenitis [Recovering/Resolving]
  - Calculus urinary [Recovering/Resolving]
  - Iron deficiency anaemia [Recovering/Resolving]
  - Gastritis [Recovering/Resolving]

NARRATIVE: CASE EVENT DATE: 20231101
